FAERS Safety Report 5479131-3 (Version None)
Quarter: 2007Q4

REPORT INFORMATION
  Report Type: 
  Country: None (occurrence: None)
  Receive Date: 20071006
  Receipt Date: 20070928
  Transmission Date: 20080405
  Serious: Yes (Other)
  Sender: FDA-Public Use
  Company Number: NO-PFIZER INC-2007081811

PATIENT
  Sex: Male

DRUGS (4)
  1. CAMPTOSAR [Suspect]
     Indication: COLORECTAL CANCER
  2. FLUOROURACIL [Suspect]
     Indication: COLORECTAL CANCER
  3. LEUCOVORIN CALCIUM [Suspect]
     Indication: COLORECTAL CANCER
  4. AVASTIN [Suspect]
     Indication: COLORECTAL CANCER

REACTIONS (1)
  - NEPHROTIC SYNDROME [None]
